FAERS Safety Report 6723382-4 (Version None)
Quarter: 2010Q2

REPORT INFORMATION
  Report Type: 
  Country: None (occurrence: None)
  Receive Date: 20100513
  Receipt Date: 20090527
  Transmission Date: 20101027
  Serious: No
  Sender: FDA-Public Use
  Company Number: US-ABBOTT-09P-163-0576662-00

PATIENT
  Sex: Male
  Weight: 118.04 kg

DRUGS (2)
  1. GENGRAF [Suspect]
     Indication: RENAL TRANSPLANT
     Dates: start: 19990101
  2. DECLINED LONG LIST [Concomitant]
     Indication: DRUG USE FOR UNKNOWN INDICATION

REACTIONS (1)
  - DENTAL CARE [None]
